FAERS Safety Report 11809910 (Version 1)
Quarter: 2015Q4

REPORT INFORMATION
  Report Type: Spontaneous
  Country: GB (occurrence: GB)
  Receive Date: 20151208
  Receipt Date: 20151208
  Transmission Date: 20160305
  Serious: Yes (Other)
  Sender: FDA-Public Use
  Company Number: GB-AMGEN-GBRSP2015019472

PATIENT
  Age: 36 Year
  Sex: Female

DRUGS (1)
  1. ENBREL [Suspect]
     Active Substance: ETANERCEPT
     Indication: PSORIATIC ARTHROPATHY
     Dosage: 50 MG, WEEKLY
     Route: 065
     Dates: start: 20141202

REACTIONS (7)
  - Nausea [Unknown]
  - Drug ineffective [Unknown]
  - Injection site reaction [Unknown]
  - Injection site erythema [Unknown]
  - Psoriatic arthropathy [Unknown]
  - Condition aggravated [Unknown]
  - Injection site inflammation [Unknown]

NARRATIVE: CASE EVENT DATE: 2015
